FAERS Safety Report 4608251-8 (Version None)
Quarter: 2005Q1

REPORT INFORMATION
  Report Type: 
  Country: None (occurrence: None)
  Receive Date: 20050311
  Receipt Date: 20050307
  Transmission Date: 20050727
  Serious: No
  Sender: FDA-Public Use
  Company Number: 2005UW03645

PATIENT
  Age: 89 Year
  Sex: Female

DRUGS (2)
  1. CRESTOR [Suspect]
     Dosage: 20 MG DAILY PO
     Route: 048
  2. TENORMIN [Concomitant]

REACTIONS (6)
  - ALANINE AMINOTRANSFERASE INCREASED [None]
  - ASPARTATE AMINOTRANSFERASE INCREASED [None]
  - BLOOD CREATINE PHOSPHOKINASE INCREASED [None]
  - DEHYDRATION [None]
  - HYPOKINESIA [None]
  - MUSCULAR WEAKNESS [None]
